FAERS Safety Report 7389660-3 (Version None)
Quarter: 2011Q1

REPORT INFORMATION
  Report Type: 
  Country: None (occurrence: None)
  Receive Date: 20110323
  Receipt Date: 20110311
  Transmission Date: 20110831
  Serious: Yes (Death, Hospitalization)
  Sender: FDA-Public Use
  Company Number: 2009AC000062

PATIENT
  Age: 49 Year
  Sex: Male
  Weight: 151.955 kg

DRUGS (38)
  1. PAROXETINE [Concomitant]
  2. XOPENEX [Concomitant]
  3. INSULIN [Concomitant]
  4. DOXYCYCLINE [Concomitant]
  5. LOVENOX [Concomitant]
  6. IRON SULFATETHIAMIN COMPOUND TAB [Concomitant]
  7. FUROSEMIDE [Concomitant]
  8. ATROVENT [Concomitant]
  9. ATENOLOL [Concomitant]
  10. ZOCOR [Concomitant]
  11. NIACIN [Concomitant]
  12. POTASSIUM CHLORIDE [Concomitant]
  13. COMBIVENT [Concomitant]
  14. NIACIN [Concomitant]
  15. PRILOSEC [Concomitant]
  16. PAROXETINE [Concomitant]
  17. PROTONIX [Concomitant]
  18. ALBUTEROL [Concomitant]
  19. LEVAQUIN [Concomitant]
  20. ASPIRIN [Concomitant]
  21. FLUTICASONE [Concomitant]
  22. DIGOXIN [Suspect]
     Dosage: 0.25 MG;QD;PO
     Route: 048
     Dates: start: 20041214, end: 20070501
  23. LISINOPRIL [Concomitant]
  24. SOLU-MEDROL [Concomitant]
  25. ALBUTEROL [Concomitant]
  26. ADVAIR DISKUS 100/50 [Concomitant]
  27. VERAPAMIL [Concomitant]
  28. WARFARIN SODIUM [Concomitant]
  29. VYTORIN [Concomitant]
  30. PREDNISONE [Concomitant]
  31. QVAR 40 [Concomitant]
  32. LOVASTATIN [Concomitant]
  33. DIGOXIN [Suspect]
     Dosage: 0.125 MG;QD;PO
     Route: 048
     Dates: start: 20040921, end: 20041213
  34. PAXIL [Concomitant]
  35. NITROGLYCERIN [Concomitant]
  36. QVAR 40 [Concomitant]
  37. NASAREL [Concomitant]
  38. MEDROL [Concomitant]

REACTIONS (42)
  - COR PULMONALE [None]
  - WHITE BLOOD CELL COUNT INCREASED [None]
  - ACUTE MYOCARDIAL INFARCTION [None]
  - UPPER RESPIRATORY TRACT INFECTION [None]
  - FALL [None]
  - DEPRESSION [None]
  - DIVERTICULITIS [None]
  - BRONCHITIS [None]
  - HYPOTENSION [None]
  - CHRONIC OBSTRUCTIVE PULMONARY DISEASE [None]
  - PROTHROMBIN TIME PROLONGED [None]
  - CARDIO-RESPIRATORY ARREST [None]
  - INTERSTITIAL LUNG DISEASE [None]
  - ELECTROCARDIOGRAM T WAVE ABNORMAL [None]
  - MULTIPLE INJURIES [None]
  - MITRAL VALVE INCOMPETENCE [None]
  - CARDIAC FAILURE CONGESTIVE [None]
  - CARDIOMYOPATHY [None]
  - GASTRITIS [None]
  - CARDIOACTIVE DRUG LEVEL DECREASED [None]
  - LIPID METABOLISM DISORDER [None]
  - INTERNATIONAL NORMALISED RATIO DECREASED [None]
  - CONDITION AGGRAVATED [None]
  - CONTUSION [None]
  - PNEUMONIA [None]
  - BUNDLE BRANCH BLOCK RIGHT [None]
  - TREATMENT NONCOMPLIANCE [None]
  - IRON DEFICIENCY ANAEMIA [None]
  - VASCULAR INSUFFICIENCY [None]
  - ALOPECIA [None]
  - VENTRICULAR TACHYCARDIA [None]
  - ECONOMIC PROBLEM [None]
  - ATRIAL FIBRILLATION [None]
  - BLOOD ALBUMIN DECREASED [None]
  - DIARRHOEA [None]
  - BLOOD CALCIUM DECREASED [None]
  - SKIN ATROPHY [None]
  - MYOCARDIAL ISCHAEMIA [None]
  - SUPRAVENTRICULAR EXTRASYSTOLES [None]
  - HYPERTENSION [None]
  - VENTRICULAR FIBRILLATION [None]
  - ATRIAL SEPTAL DEFECT [None]
